FAERS Safety Report 5226090-4 (Version None)
Quarter: 2007Q1

REPORT INFORMATION
  Report Type: 
  Country: None (occurrence: None)
  Receive Date: 20070201
  Receipt Date: 20070125
  Transmission Date: 20070707
  Serious: Yes (Hospitalization)
  Sender: FDA-Public Use
  Company Number: FRWYE350125JAN07

PATIENT
  Sex: Female
  Weight: 26 kg

DRUGS (2)
  1. ADVIL [Suspect]
     Dosage: UNKNOWN
     Route: 048
     Dates: start: 20061228, end: 20061228
  2. CLAMOXYL [Concomitant]
     Dosage: UNKNOWN
     Route: 048
     Dates: start: 20061228, end: 20061201

REACTIONS (5)
  - CONDITION AGGRAVATED [None]
  - EYE PAIN [None]
  - HEADACHE [None]
  - PYREXIA [None]
  - VOMITING [None]
